FAERS Safety Report 17765502 (Version 1)
Quarter: 2020Q2

REPORT INFORMATION
  Report Type: Spontaneous
  Country: US (occurrence: US)
  Receive Date: 20200508
  Receipt Date: 20200508
  Transmission Date: 20200714
  Serious: Yes (Other)
  Sender: FDA-Public Use
  Company Number: None

PATIENT
  Age: 25 Year
  Sex: Male

DRUGS (3)
  1. AMBRISENTAN 5MG TABLETS 30/BO: 5MG [Suspect]
     Active Substance: AMBRISENTAN
     Indication: PULMONARY ARTERIAL HYPERTENSION
     Route: 048
     Dates: start: 201903, end: 202004
  2. ASPIRIN. [Concomitant]
     Active Substance: ASPIRIN
  3. TADALAFIL. [Concomitant]
     Active Substance: TADALAFIL

REACTIONS (1)
  - Lethargy [None]

NARRATIVE: CASE EVENT DATE: 20200413
